FAERS Safety Report 23257057 (Version 3)
Quarter: 2024Q1

REPORT INFORMATION
  Report Type: Spontaneous
  Country: US (occurrence: US)
  Receive Date: 20231204
  Receipt Date: 20240122
  Transmission Date: 20240409
  Serious: Yes (Hospitalization)
  Sender: FDA-Public Use
  Company Number: US-BIOVITRUM-2023-US-019441

PATIENT
  Age: 7 Month
  Sex: Female

DRUGS (2)
  1. SYNAGIS [Suspect]
     Active Substance: PALIVIZUMAB
     Indication: Premature baby
     Dosage: 109.65MG, EVERY 28DAYS - 30DAYS
     Route: 030
     Dates: start: 20230828
  2. SYNAGIS [Suspect]
     Active Substance: PALIVIZUMAB
     Dosage: 117.0000 MG, EVERY 28DAYS - 30DAYS
     Route: 030
     Dates: start: 20230828

REACTIONS (3)
  - Respiratory syncytial virus bronchitis [Unknown]
  - Irritability [Unknown]
  - Injection site swelling [Recovering/Resolving]
